FAERS Safety Report 8425096 (Version 2)
Quarter: 2012Q4

REPORT INFORMATION
  Report Type: Report from Study
  Country: US (occurrence: US)
  Receive Date: 20120224
  Receipt Date: 20121214
  Transmission Date: 20130627
  Serious: Yes (Disabling)
  Sender: FDA-Public Use
  Company Number: US-ABBOTT-12P-163-0904683-00

PATIENT
  Sex: Female
  Weight: 62.65 kg

DRUGS (9)
  1. HUMIRA [Suspect]
     Indication: CROHN^S DISEASE
     Route: 058
     Dates: start: 20090313, end: 20090313
  2. HUMIRA [Suspect]
     Dosage: week 2
     Route: 058
  3. HUMIRA [Suspect]
     Route: 058
     Dates: end: 20090501
  4. HUMIRA [Suspect]
     Route: 058
     Dates: start: 20120215
  5. PHENERGAN [Concomitant]
     Indication: NAUSEA
     Dosage: Q6H PRN
     Dates: start: 200901
  6. SULFASALAZINE [Concomitant]
     Indication: CROHN^S DISEASE
     Dates: start: 2009
  7. BENTYL [Concomitant]
     Indication: CROHN^S DISEASE
     Dates: start: 20101104
  8. IMURAN [Concomitant]
     Indication: CROHN^S DISEASE
     Dates: start: 20101104
  9. MESALAZINE [Concomitant]
     Indication: CROHN^S DISEASE
     Dates: start: 20101123, end: 201101

REACTIONS (1)
  - Systemic lupus erythematosus [Not Recovered/Not Resolved]
